FAERS Safety Report 4531511-6 (Version None)
Quarter: 2004Q4

REPORT INFORMATION
  Report Type: 
  Country: None (occurrence: None)
  Receive Date: 20041220
  Receipt Date: 20041208
  Transmission Date: 20050328
  Serious: Yes (Other)
  Sender: FDA-Public Use
  Company Number: US-JNJFOC-20040806757

PATIENT
  Sex: Female
  Weight: 60.33 kg

DRUGS (6)
  1. REMICADE [Suspect]
     Indication: CROHN'S DISEASE
     Route: 042
  2. AZASAN [Concomitant]
  3. XANAX [Concomitant]
  4. PREDNISONE [Concomitant]
  5. ULTRAM [Concomitant]
  6. PENTASA [Concomitant]
     Dosage: OFF FOR TWO YEARS.

REACTIONS (12)
  - APHONIA [None]
  - ARTHRALGIA [None]
  - DERMATITIS EXFOLIATIVE [None]
  - HEADACHE [None]
  - HYPOAESTHESIA [None]
  - INFLUENZA [None]
  - OROPHARYNGEAL SWELLING [None]
  - PAIN [None]
  - PARAESTHESIA [None]
  - PARALYSIS [None]
  - RASH [None]
  - SINUSITIS [None]
